FAERS Safety Report 13389793 (Version 1)
Quarter: 2017Q1

REPORT INFORMATION
  Report Type: Spontaneous
  Country: NZ (occurrence: NZ)
  Receive Date: 20170331
  Receipt Date: 20170331
  Transmission Date: 20170429
  Serious: Yes (Other)
  Sender: FDA-Public Use
  Company Number: NZ-ASTRAZENECA-2017SE31527

PATIENT
  Age: 77 Year
  Sex: Female

DRUGS (1)
  1. SEROQUEL [Suspect]
     Active Substance: QUETIAPINE FUMARATE
     Indication: ANXIETY
     Dosage: 300.0MG UNKNOWN
     Route: 048
     Dates: start: 2003

REACTIONS (9)
  - Renal disorder [Unknown]
  - Palpitations [Unknown]
  - Hyperhidrosis [Unknown]
  - Visual impairment [Unknown]
  - Product use issue [Unknown]
  - Diabetes mellitus [Unknown]
  - Cardiac disorder [Unknown]
  - Dry mouth [Unknown]
  - Off label use [Unknown]
